FAERS Safety Report 8183240-8 (Version None)
Quarter: 2012Q1

REPORT INFORMATION
  Report Type: 
  Country: None (occurrence: None)
  Receive Date: 20120305
  Receipt Date: 20120228
  Transmission Date: 20120608
  Serious: Yes (Death, Other)
  Sender: FDA-Public Use
  Company Number: DE-ASTELLAS-2012EU001472

PATIENT
  Sex: Female
  Weight: 65 kg

DRUGS (1)
  1. MICAFUNGIN INJECTION [Suspect]
     Indication: FUNGAL INFECTION
     Dosage: 100 MG, UID/QD
     Route: 042
     Dates: start: 20120203, end: 20120219

REACTIONS (3)
  - ABDOMINAL WOUND DEHISCENCE [None]
  - URINARY TRACT INFECTION [None]
  - MULTI-ORGAN FAILURE [None]
